FAERS Safety Report 6543751-5 (Version None)
Quarter: 2010Q1

REPORT INFORMATION
  Report Type: 
  Country: None (occurrence: None)
  Receive Date: 20100119
  Receipt Date: 20100119
  Transmission Date: 20100710
  Serious: Yes (Other)
  Sender: FDA-Public Use
  Company Number: None

PATIENT
  Age: 39 Year
  Sex: Female
  Weight: 57.1532 kg

DRUGS (1)
  1. TYLENOL PM 500MG ACET. 25MG DIPHEN TYLENOL/MCNEIL-PPC INC [Suspect]
     Indication: INSOMNIA
     Dosage: TWO CAPLETS ONE USE PO
     Route: 048
     Dates: start: 20100111, end: 20100111

REACTIONS (3)
  - DIARRHOEA [None]
  - MUSCLE SPASMS [None]
  - VOMITING [None]
